FAERS Safety Report 7772274-0 (Version None)
Quarter: 2011Q3

REPORT INFORMATION
  Report Type: 
  Country: None (occurrence: None)
  Receive Date: 20110922
  Receipt Date: 20110715
  Transmission Date: 20111222
  Serious: No
  Sender: FDA-Public Use
  Company Number: US-ASTRAZENECA-2011SE42708

PATIENT
  Sex: Female

DRUGS (5)
  1. SEROQUEL XR [Suspect]
     Indication: SLEEP DISORDER
     Route: 048
     Dates: start: 20060101
  2. NEURONTIN [Concomitant]
  3. SEROQUEL XR [Suspect]
     Indication: BIPOLAR DISORDER
     Route: 048
     Dates: start: 20060101
  4. XANAX [Concomitant]
  5. TRAZODONE HYDROCHLORIDE [Concomitant]

REACTIONS (2)
  - MALAISE [None]
  - TOOTH EXTRACTION [None]
